FAERS Safety Report 10446555 (Version 1)
Quarter: 2014Q3

REPORT INFORMATION
  Report Type: Spontaneous
  Country: US (occurrence: None)
  Receive Date: 20140910
  Receipt Date: 20140910
  Transmission Date: 20150326
  Serious: Yes (Other)
  Sender: FDA-Public Use
  Company Number: None

PATIENT
  Age: 68 Year
  Sex: Male
  Weight: 69.4 kg

DRUGS (4)
  1. SUPPLEMENTS [Concomitant]
     Active Substance: UNSPECIFIED INGREDIENT
  2. SUBOXONE [Concomitant]
     Active Substance: BUPRENORPHINE HYDROCHLORIDE\NALOXONE HYDROCHLORIDE
  3. VALIUM [Suspect]
     Active Substance: DIAZEPAM
     Dosage: 10 MG, 1/2 TO 1 TABLET BY MOUTH ONCE A DAY
     Route: 048
  4. VITAMINS [Concomitant]
     Active Substance: VITAMINS

REACTIONS (3)
  - Product substitution issue [None]
  - Product physical issue [None]
  - Product quality issue [None]

NARRATIVE: CASE EVENT DATE: 20121116
